FAERS Safety Report 8691205 (Version 4)
Quarter: 2012Q4

REPORT INFORMATION
  Report Type: 
  Country: DE (occurrence: DE)
  Receive Date: 20120730
  Receipt Date: 20120914
  Transmission Date: 20130627
  Serious: Yes (Hospitalization)
  Sender: FDA-Public Use
  Company Number: DE-PFIZER INC-2012176982

PATIENT
  Age: 54 Year
  Sex: Male
  Weight: 114 kg

DRUGS (13)
  1. TORISEL [Suspect]
     Dosage: 25 mg, weekly
     Route: 042
     Dates: start: 20120204, end: 20120716
  2. TORISEL [Suspect]
     Dosage: UNK
     Dates: end: 20120820
  3. METFORMIN [Concomitant]
     Indication: DIABETES MELLITUS
     Dosage: 850 mg
     Route: 048
  4. HYDROCHLOROTHIAZIDE [Concomitant]
     Indication: HYPERTENSION
     Dosage: 12.5 mg, 1x/day
     Route: 048
  5. METOPROLOL [Concomitant]
     Indication: HYPERTENSION
     Dosage: 200 mg, 1x/day
     Route: 048
  6. ENALAPRIL [Concomitant]
     Indication: HYPERTENSION
     Dosage: 10 mg, 1x/day
     Route: 048
  7. PANTOPRAZOLE [Concomitant]
     Dosage: 40 mg, 1x/day
  8. CORVO [Concomitant]
     Dosage: 10 mg, UNK
  9. COLCHICUM-DISPERT [Concomitant]
     Dosage: UNK, as needed
  10. METOCLOPRAMIDE [Concomitant]
     Dosage: UNK, as needed
  11. VOLTAREN [Concomitant]
     Dosage: UNK, as needed
  12. TAVEGIL [Concomitant]
     Indication: PREMEDICATION
     Dosage: 2 mg, UNK
  13. DEXAMETHASONE [Concomitant]
     Indication: PREMEDICATION
     Dosage: 8 mg, UNK

REACTIONS (2)
  - Blood glucose abnormal [Recovered/Resolved]
  - Lipids abnormal [Recovered/Resolved]
